FAERS Safety Report 7438133-8 (Version None)
Quarter: 2011Q2

REPORT INFORMATION
  Report Type: 
  Country: None (occurrence: None)
  Receive Date: 20110426
  Receipt Date: 20110418
  Transmission Date: 20111010
  Serious: Yes (Hospitalization)
  Sender: FDA-Public Use
  Company Number: FR-PFIZER INC-2011083957

PATIENT
  Age: 81 Year
  Sex: Female

DRUGS (12)
  1. DAFALGAN [Concomitant]
     Dosage: UNK
     Dates: start: 20110118, end: 20110118
  2. CELEBREX [Suspect]
     Indication: ARTHRITIS
     Dosage: UNK
     Route: 048
     Dates: start: 20110117, end: 20110127
  3. LYRICA [Suspect]
     Dosage: UNK
     Route: 048
     Dates: start: 20110117, end: 20110127
  4. AMLODIPINE BESYLATE [Concomitant]
     Dosage: UNK
     Dates: start: 20110118, end: 20110118
  5. AMLODIPINE BESYLATE [Concomitant]
     Dosage: UNK
     Dates: start: 20110121, end: 20110122
  6. ACUPAN [Concomitant]
     Dosage: UNK
     Dates: start: 20110118, end: 20110118
  7. PRADAXA [Suspect]
     Indication: PROPHYLAXIS
     Dosage: UNK
     Route: 048
     Dates: start: 20110117, end: 20110127
  8. KARDEGIC [Concomitant]
     Dosage: UNK
  9. ACUPAN [Concomitant]
     Dosage: UNK
     Dates: start: 20110121, end: 20110122
  10. KEFANDOL [Suspect]
     Dosage: 750 MG, 4X/DAY
     Dates: start: 20110117, end: 20110117
  11. ZANIDIP [Concomitant]
     Dosage: UNK
  12. DAFALGAN [Concomitant]
     Dosage: UNK
     Dates: start: 20110121, end: 20110122

REACTIONS (2)
  - LIVER INJURY [None]
  - RASH MACULO-PAPULAR [None]
